FAERS Safety Report 8378464-0 (Version None)
Quarter: 2012Q2

REPORT INFORMATION
  Report Type: 
  Country: None (occurrence: None)
  Receive Date: 20120522
  Receipt Date: 20111114
  Transmission Date: 20120825
  Serious: No
  Sender: FDA-Public Use
  Company Number: US-ASTRAZENECA-2010SE28625

PATIENT
  Age: 63 Year
  Sex: Female

DRUGS (8)
  1. HYDROCHLOROTHIAZIDE [Concomitant]
  2. PRAVASTATIN [Concomitant]
  3. PRILOSEC [Suspect]
     Route: 048
  4. ATENOLOL [Concomitant]
  5. ALPRAZOLAM [Concomitant]
  6. LOFIBRA [Concomitant]
  7. CITALOPRAM [Concomitant]
  8. NEURONTIN [Concomitant]

REACTIONS (3)
  - DIARRHOEA [None]
  - DRUG INTOLERANCE [None]
  - DRUG INEFFECTIVE [None]
